FAERS Safety Report 5842554-4 (Version None)
Quarter: 2008Q3

REPORT INFORMATION
  Report Type: 
  Country: None (occurrence: None)
  Receive Date: 20080812
  Receipt Date: 20080802
  Transmission Date: 20090109
  Serious: Yes (Death, Other)
  Sender: FDA-Public Use
  Company Number: JP-PFIZER INC-2008059898

PATIENT
  Age: 67 Year
  Sex: Male
  Weight: 49 kg

DRUGS (9)
  1. DIFLUCAN [Suspect]
     Indication: PULMONARY MYCOSIS
     Route: 048
     Dates: start: 20080603, end: 20080619
  2. CEFPODOXIME PROXETIL [Suspect]
     Indication: PULMONARY MYCOSIS
     Route: 048
     Dates: start: 20080603, end: 20080619
  3. ADALAT [Concomitant]
     Route: 048
  4. CATAPRES [Concomitant]
     Route: 048
  5. CYTOTEC [Concomitant]
     Route: 048
  6. ROCALTROL [Concomitant]
     Route: 048
  7. MOBIC [Concomitant]
     Route: 048
  8. CALTAN [Concomitant]
     Route: 048
  9. MUCODYNE [Concomitant]
     Route: 048

REACTIONS (2)
  - DERMATITIS EXFOLIATIVE [None]
  - T-CELL TYPE ACUTE LEUKAEMIA [None]
